FAERS Safety Report 6124343-9 (Version None)
Quarter: 2009Q1

REPORT INFORMATION
  Report Type: 
  Country: None (occurrence: None)
  Receive Date: 20090319
  Receipt Date: 20090313
  Transmission Date: 20090719
  Serious: Yes (Other)
  Sender: FDA-Public Use
  Company Number: JP-AVENTIS-200910438JP

PATIENT
  Age: 55 Year
  Sex: Female
  Weight: 58 kg

DRUGS (7)
  1. CLEXANE [Suspect]
     Route: 058
     Dates: start: 20090128, end: 20090202
  2. PANSPORIN [Concomitant]
     Indication: INFECTION PROPHYLAXIS
     Route: 042
     Dates: start: 20090127, end: 20090131
  3. AMORIN                             /00001501/ [Concomitant]
     Indication: INFECTION PROPHYLAXIS
     Route: 048
     Dates: start: 20090201, end: 20090207
  4. FERROMIA                           /00023516/ [Concomitant]
     Route: 048
     Dates: start: 20090128, end: 20090220
  5. IRZAIM [Concomitant]
     Route: 048
     Dates: start: 20090128, end: 20090217
  6. MUCOSTA [Concomitant]
     Indication: GASTRIC DISORDER
     Route: 048
     Dates: start: 20090128, end: 20090216
  7. LOXONIN                            /00890701/ [Concomitant]
     Route: 048
     Dates: start: 20090118, end: 20090216

REACTIONS (4)
  - ALANINE AMINOTRANSFERASE INCREASED [None]
  - ASPARTATE AMINOTRANSFERASE INCREASED [None]
  - HEPATIC FUNCTION ABNORMAL [None]
  - LIVER INJURY [None]
